FAERS Safety Report 9856494 (Version 1)
Quarter: 2014Q1

REPORT INFORMATION
  Report Type: Report from Study
  Country: US (occurrence: US)
  Receive Date: 20140130
  Receipt Date: 20140130
  Transmission Date: 20141002
  Serious: Yes (Hospitalization)
  Sender: FDA-Public Use
  Company Number: US-BAYER-2014-014754

PATIENT
  Age: 84 Year
  Sex: Female

DRUGS (1)
  1. STIVARGA [Suspect]
     Indication: COLON CANCER
     Dosage: DOSE: 40MG, FREQUENCY: 4 DAILY

REACTIONS (3)
  - Dehydration [None]
  - Diarrhoea [None]
  - Abdominal pain [None]
